FAERS Safety Report 16410149 (Version 1)
Quarter: 2019Q3

REPORT INFORMATION
  Report Type: Spontaneous
  Country: US (occurrence: US)
  Receive Date: 20190607
  Receipt Date: 20190607
  Transmission Date: 20191004
  Serious: Yes (Hospitalization)
  Sender: FDA-Public Use
  Company Number: None

PATIENT
  Age: 44 Year
  Sex: Male

DRUGS (7)
  1. IBUPROFEN. [Concomitant]
     Active Substance: IBUPROFEN
  2. PREDNISOLONE. [Concomitant]
     Active Substance: PREDNISOLONE
  3. PANTOPRAZOLE [Concomitant]
     Active Substance: PANTOPRAZOLE
  4. YERVOY [Suspect]
     Active Substance: IPILIMUMAB
     Indication: METASTASIS
     Dosage: ?          OTHER FREQUENCY:ONCE FOR 1 DOSE;?
     Route: 042
     Dates: start: 20190423
  5. KETOTIF FUM [Concomitant]
  6. OPDIVO [Suspect]
     Active Substance: NIVOLUMAB
     Indication: METASTASIS
     Dosage: INTRAVENOUS; :EVERY 28 DAYS?
     Route: 042
     Dates: start: 20180710
  7. PREDNISONE. [Concomitant]
     Active Substance: PREDNISONE

REACTIONS (1)
  - Hepatitis [None]

NARRATIVE: CASE EVENT DATE: 20190516
